FAERS Safety Report 4688103-8 (Version None)
Quarter: 2005Q2

REPORT INFORMATION
  Report Type: 
  Country: None (occurrence: None)
  Receive Date: 20050609
  Receipt Date: 20050526
  Transmission Date: 20051028
  Serious: Yes (Other)
  Sender: FDA-Public Use
  Company Number: 2005069722

PATIENT
  Age: 10 Month
  Sex: Female
  Weight: 7.2576 kg

DRUGS (2)
  1. BENADRYL [Suspect]
     Indication: URTICARIA
     Dosage: 3 ML QD, IN THE EVENING, ORAL
     Route: 048
     Dates: start: 20050418, end: 20050430
  2. RANITIDINE HYDROCHLORIDE [Concomitant]

REACTIONS (3)
  - MUSCLE TWITCHING [None]
  - TIC [None]
  - TREMOR [None]
